FAERS Safety Report 4943858-X (Version None)
Quarter: 2006Q1

REPORT INFORMATION
  Report Type: 
  Country: None (occurrence: None)
  Receive Date: 20060310
  Receipt Date: 20060308
  Transmission Date: 20060701
  Serious: Yes (Other)
  Sender: FDA-Public Use
  Company Number: 99/00054-FRA

PATIENT
  Age: 43 Year
  Sex: Female

DRUGS (1)
  1. MIRENA [Suspect]
     Dosage: OTHER
     Route: 050
     Dates: start: 19941019

REACTIONS (2)
  - BREAST CANCER IN SITU [None]
  - BREAST NECROSIS [None]
